FAERS Safety Report 7676421-0 (Version None)
Quarter: 2011Q3

REPORT INFORMATION
  Report Type: 
  Country: None (occurrence: None)
  Receive Date: 20110811
  Receipt Date: 20110801
  Transmission Date: 20111222
  Serious: Yes (Hospitalization)
  Sender: FDA-Public Use
  Company Number: US-JNJFOC-20110400301

PATIENT
  Sex: Male
  Weight: 60 kg

DRUGS (3)
  1. INFLIXIMAB, RECOMBINANT [Suspect]
     Indication: PROPHYLAXIS
     Route: 042
     Dates: start: 20030724, end: 20070112
  2. MERCAPTOPURINE [Concomitant]
  3. INFLIXIMAB, RECOMBINANT [Suspect]
     Indication: INFLAMMATORY BOWEL DISEASE
     Route: 042
     Dates: start: 20030724, end: 20070112

REACTIONS (1)
  - NO THERAPEUTIC RESPONSE [None]
